FAERS Safety Report 15798777 (Version 2)
Quarter: 2019Q1

REPORT INFORMATION
  Report Type: Report from Study
  Country: US (occurrence: US)
  Receive Date: 20190108
  Receipt Date: 20190321
  Transmission Date: 20190417
  Serious: Yes (Other)
  Sender: FDA-Public Use
  Company Number: US-BAYER-2018-181578

PATIENT
  Age: 64 Year
  Sex: Male

DRUGS (2)
  1. NEXAVAR [Suspect]
     Active Substance: SORAFENIB
     Indication: HEPATOCELLULAR CARCINOMA
     Dosage: 200 MG, BID
     Route: 048
     Dates: start: 20180920, end: 201809
  2. NEXAVAR [Suspect]
     Active Substance: SORAFENIB
     Indication: HEPATOCELLULAR CARCINOMA
     Dosage: 200 MG, BID
     Route: 048
     Dates: start: 20180925, end: 20181223

REACTIONS (11)
  - Diarrhoea [Recovered/Resolved]
  - Neuropathy peripheral [None]
  - Diarrhoea [Not Recovered/Not Resolved]
  - Adverse event [Not Recovered/Not Resolved]
  - Off label use [None]
  - Abdominal discomfort [None]
  - Burning sensation [None]
  - Weight decreased [Recovering/Resolving]
  - Blood pressure increased [None]
  - Gait inability [Recovered/Resolved]
  - Abdominal pain upper [Not Recovered/Not Resolved]

NARRATIVE: CASE EVENT DATE: 2018
